FAERS Safety Report 21027003 (Version 1)
Quarter: 2022Q2

REPORT INFORMATION
  Report Type: Spontaneous
  Country: US (occurrence: US)
  Receive Date: 20220630
  Receipt Date: 20220630
  Transmission Date: 20220721
  Serious: No
  Sender: FDA-Public Use
  Company Number: US-ORGANON-O2206USA002242

PATIENT
  Age: 9 Month
  Sex: Female

DRUGS (3)
  1. NASONEX [Suspect]
     Active Substance: MOMETASONE FUROATE
     Indication: Nasal congestion
     Dosage: 1 PUFF, ONCE DAILY
     Route: 045
     Dates: start: 2020
  2. CIPRODEX [Concomitant]
     Active Substance: CIPROFLOXACIN HYDROCHLORIDE\DEXAMETHASONE
     Indication: Nasal congestion
     Dosage: 1 DROP TWICE DAILY IN THE RIGHT NOSTRIL, OTIC DROPS
     Route: 045
     Dates: start: 2020, end: 2020
  3. SODIUM CHLORIDE [Concomitant]
     Active Substance: SODIUM CHLORIDE
     Indication: Choanal atresia
     Dosage: 3 TIMES A DAY
     Route: 045
     Dates: start: 2020

REACTIONS (3)
  - Product administered to patient of inappropriate age [Unknown]
  - Product use issue [Unknown]
  - Product use in unapproved indication [Unknown]

NARRATIVE: CASE EVENT DATE: 20200101
